FAERS Safety Report 6933061-6 (Version None)
Quarter: 2010Q3

REPORT INFORMATION
  Report Type: 
  Country: None (occurrence: None)
  Receive Date: 20100819
  Receipt Date: 20100809
  Transmission Date: 20110219
  Serious: Yes (Hospitalization)
  Sender: FDA-Public Use
  Company Number: US-ABBOTT-10P-163-0662678-00

PATIENT
  Sex: Female
  Weight: 40.86 kg

DRUGS (13)
  1. HUMIRA [Suspect]
     Indication: CROHN'S DISEASE
     Dates: start: 20060101, end: 20070101
  2. HUMIRA [Suspect]
     Indication: RHEUMATOID ARTHRITIS
     Dates: start: 20100101, end: 20100101
  3. HUMIRA [Suspect]
     Dates: start: 20100101, end: 20100501
  4. HUMIRA [Suspect]
     Dates: start: 20100501, end: 20100729
  5. HUMIRA [Suspect]
     Dates: start: 20100729, end: 20100729
  6. MOTRIN [Suspect]
     Indication: RHEUMATOID ARTHRITIS
     Dates: start: 20100101, end: 20100101
  7. BENADRYL [Concomitant]
     Indication: HYPERSENSITIVITY
  8. CLARITIN [Concomitant]
     Indication: HYPERSENSITIVITY
  9. SOMA [Concomitant]
     Indication: RHEUMATOID ARTHRITIS
  10. MOBIC [Concomitant]
     Indication: RHEUMATOID ARTHRITIS
  11. NEXIUM [Concomitant]
     Indication: GASTRIC ULCER
  12. NEXIUM [Concomitant]
     Indication: DUODENAL ULCER
  13. VALIUM [Concomitant]
     Indication: MUSCLE SPASMS

REACTIONS (10)
  - ARTHRALGIA [None]
  - ARTHRITIS [None]
  - COUGH [None]
  - CROHN'S DISEASE [None]
  - FISTULA [None]
  - GASTRIC ULCER [None]
  - JOINT SWELLING [None]
  - PYODERMA [None]
  - PYREXIA [None]
  - RASH [None]
